FAERS Safety Report 19064210 (Version 2)
Quarter: 2021Q2

REPORT INFORMATION
  Report Type: Spontaneous
  Country: AT (occurrence: AT)
  Receive Date: 20210326
  Receipt Date: 20210415
  Transmission Date: 20210717
  Serious: Yes (Other)
  Sender: FDA-Public Use
  Company Number: NVSC2021AT065083

PATIENT
  Age: 40 Year
  Sex: Female

DRUGS (2)
  1. TRAMETINIB [Suspect]
     Active Substance: TRAMETINIB
     Indication: MALIGNANT MELANOMA
     Dosage: UNK
     Route: 065
     Dates: start: 201507, end: 201605
  2. DABRAFENIB [Suspect]
     Active Substance: DABRAFENIB
     Indication: MALIGNANT MELANOMA
     Dosage: UNK
     Route: 065
     Dates: start: 201507, end: 201605

REACTIONS (7)
  - Malignant melanoma [Unknown]
  - Malignant neoplasm progression [Unknown]
  - Metastases to liver [Unknown]
  - Abdominal pain [Unknown]
  - Lymphadenopathy [Unknown]
  - Melanoma recurrent [Unknown]
  - Ileus [Unknown]

NARRATIVE: CASE EVENT DATE: 201604
